FAERS Safety Report 10439503 (Version 2)
Quarter: 2014Q3

REPORT INFORMATION
  Report Type: Spontaneous
  Country: US (occurrence: US)
  Receive Date: 20140908
  Receipt Date: 20140908
  Transmission Date: 20150326
  Serious: Yes (Other)
  Sender: FDA-Public Use
  Company Number: US-BRISTOL-MYERS SQUIBB COMPANY-19221134

PATIENT
  Age: 53 Year
  Sex: Male

DRUGS (2)
  1. ABILIFY MAINTENA [Suspect]
     Active Substance: ARIPIPRAZOLE
     Indication: SCHIZOPHRENIA, PARANOID TYPE
     Route: 030
     Dates: start: 20130715, end: 2013
  2. ABILIFY [Suspect]
     Active Substance: ARIPIPRAZOLE
     Dosage: DOSE ALSO INCR 30MG
     Route: 048
     Dates: start: 201307, end: 2013

REACTIONS (2)
  - Drug ineffective [Unknown]
  - Schizophrenia [Unknown]

NARRATIVE: CASE EVENT DATE: 201308
